FAERS Safety Report 26073397 (Version 1)
Quarter: 2025Q4

REPORT INFORMATION
  Report Type: Spontaneous
  Country: EU (occurrence: EU)
  Receive Date: 20251121
  Receipt Date: 20251121
  Transmission Date: 20260118
  Serious: Yes (Other)
  Sender: ACCORD
  Company Number: None

PATIENT
  Age: 24 Year
  Sex: Female

DRUGS (2)
  1. SERTRALINE [Suspect]
     Active Substance: SERTRALINE HYDROCHLORIDE
     Indication: Depression
     Dosage: 0+0+3
     Dates: start: 20160101, end: 2022
  2. MIRTAZAPINE [Concomitant]
     Active Substance: MIRTAZAPINE

REACTIONS (7)
  - Multiple acyl-coenzyme A dehydrogenase deficiency [Unknown]
  - Hepatic enzyme increased [Unknown]
  - Carnitine deficiency [Unknown]
  - Vitamin B12 deficiency [Unknown]
  - Hypokalaemia [Unknown]
  - Blood folate decreased [Unknown]
  - CSF test abnormal [Unknown]

NARRATIVE: CASE EVENT DATE: 20220101
